FAERS Safety Report 10685397 (Version 1)
Quarter: 2014Q4

REPORT INFORMATION
  Report Type: Spontaneous
  Country: US (occurrence: None)
  Receive Date: 20141230
  Receipt Date: 20141230
  Transmission Date: 20150529
  Serious: No
  Sender: FDA-Public Use
  Company Number: None

PATIENT
  Sex: Male

DRUGS (17)
  1. NITROFURANTOIN. [Concomitant]
     Active Substance: NITROFURANTOIN
  2. ACETAMINOPHEN/COD [Concomitant]
  3. CALCIUM CARB [Concomitant]
  4. XTANDI [Suspect]
     Active Substance: ENZALUTAMIDE
     Indication: PROSTATE CANCER
     Route: 048
     Dates: start: 20141203
  5. POTASSIUM CL [Concomitant]
     Active Substance: POTASSIUM CHLORIDE
  6. TAMSULOSIN [Concomitant]
     Active Substance: TAMSULOSIN
  7. MORPHINE SULFATE. [Concomitant]
     Active Substance: MORPHINE SULFATE
  8. HYDROCHLOROTHIAZIDE. [Concomitant]
     Active Substance: HYDROCHLOROTHIAZIDE
  9. ZYTIGA [Concomitant]
     Active Substance: ABIRATERONE ACETATE
  10. LYRICA [Concomitant]
     Active Substance: PREGABALIN
  11. LUPRON DEPOT [Concomitant]
     Active Substance: LEUPROLIDE ACETATE
  12. PREDNISONE. [Concomitant]
     Active Substance: PREDNISONE
  13. METHYLPHENIDATE [Concomitant]
     Active Substance: METHYLPHENIDATE
  14. AMPICILLIN [Concomitant]
     Active Substance: AMPICILLIN
  15. VENLAFAXINE ER [Concomitant]
     Active Substance: VENLAFAXINE HYDROCHLORIDE
  16. VITAMIN E [Concomitant]
     Active Substance: .ALPHA.-TOCOPHEROL
  17. VITAMIN D [Concomitant]
     Active Substance: CHOLECALCIFEROL

REACTIONS (4)
  - Cough [None]
  - Foreign body [None]
  - Pain [None]
  - Product physical issue [None]
